APPROVED DRUG PRODUCT: DEXTROSE 5% AND SODIUM CHLORIDE 0.45% IN PLASTIC CONTAINER
Active Ingredient: DEXTROSE; SODIUM CHLORIDE
Strength: 5GM/100ML;450MG/100ML
Dosage Form/Route: INJECTABLE;INJECTION
Application: N017607 | Product #001 | TE Code: AP
Applicant: OTSUKA ICU MEDICAL LLC
Approved: Approved Prior to Jan 1, 1982 | RLD: Yes | RS: No | Type: RX